FAERS Safety Report 4688450-X (Version None)
Quarter: 2005Q2

REPORT INFORMATION
  Report Type: 
  Country: None (occurrence: None)
  Receive Date: 20050609
  Receipt Date: 20050609
  Transmission Date: 20051028
  Serious: Yes (Life-Threatening)
  Sender: FDA-Public Use
  Company Number: None

PATIENT
  Age: 49 Year
  Sex: Female
  Weight: 80.2867 kg

DRUGS (5)
  1. TAXOTERE [Suspect]
     Indication: BREAST CANCER
     Dosage: IV Q21 DAYS
     Route: 042
     Dates: start: 20050503
  2. TAXOTERE [Suspect]
     Indication: BREAST CANCER
     Dosage: IV Q21 DAYS
     Route: 042
     Dates: start: 20050531
  3. PALONESTRON [Concomitant]
  4. DEXAMETHASONE [Concomitant]
  5. NEULASTA [Concomitant]

REACTIONS (6)
  - DYSPNOEA [None]
  - FLUSHING [None]
  - HEART RATE INCREASED [None]
  - INFUSION RELATED REACTION [None]
  - PRURITUS GENERALISED [None]
  - RESPIRATORY RATE INCREASED [None]
